FAERS Safety Report 13559253 (Version 3)
Quarter: 2017Q3

REPORT INFORMATION
  Report Type: Report from Study
  Country: ES (occurrence: ES)
  Receive Date: 20170518
  Receipt Date: 20170824
  Transmission Date: 20171127
  Serious: Yes (Other)
  Sender: FDA-Public Use
  Company Number: ES-VELOXIS PHARMACEUTICALS-2020918

PATIENT
  Age: 74 Year
  Sex: Male
  Weight: 61.14 kg

DRUGS (1)
  1. ENVARSUS XR [Suspect]
     Active Substance: TACROLIMUS
     Indication: TRANSPLANT REJECTION
     Route: 048
     Dates: start: 20170130

REACTIONS (4)
  - Hemiparesis [Recovered/Resolved]
  - Speech disorder [Recovered/Resolved]
  - Cytomegalovirus infection [Recovering/Resolving]
  - Dizziness [Recovered/Resolved]

NARRATIVE: CASE EVENT DATE: 20170221
